FAERS Safety Report 12012820 (Version 1)
Quarter: 2016Q1

REPORT INFORMATION
  Report Type: Report from Study
  Country: ZW (occurrence: ZW)
  Receive Date: 20160205
  Receipt Date: 20160205
  Transmission Date: 20160526
  Serious: Yes (Other)
  Sender: FDA-Public Use
  Company Number: ZW-VIIV HEALTHCARE LIMITED-ZW2016GSK015772

PATIENT
  Age: 23 Year
  Sex: Female

DRUGS (3)
  1. ABACAVIR SULPHATE [Suspect]
     Active Substance: ABACAVIR
     Indication: HIV INFECTION
     Dosage: 2 TAB/CAPS DAILY ORALLY
     Route: 048
     Dates: start: 20120725
  2. VIDEX [Suspect]
     Active Substance: DIDANOSINE
     Indication: HIV INFECTION
     Dosage: 1 TAB/CAPS DAILY ORALLY
     Route: 048
     Dates: start: 20120725
  3. KALETRA [Suspect]
     Active Substance: LOPINAVIR\RITONAVIR
     Indication: HIV INFECTION
     Dosage: 4 TAB/CAPS DAILY ORALLY
     Route: 048
     Dates: start: 20120725

REACTIONS (2)
  - Stillbirth [Unknown]
  - Exposure during pregnancy [Unknown]

NARRATIVE: CASE EVENT DATE: 20130721
